FAERS Safety Report 5988718-0 (Version None)
Quarter: 2008Q4

REPORT INFORMATION
  Report Type: 
  Country: None (occurrence: None)
  Receive Date: 20081210
  Receipt Date: 20081202
  Transmission Date: 20090506
  Serious: Yes (Hospitalization, Other)
  Sender: FDA-Public Use
  Company Number: PHHY2008GB25662

PATIENT
  Age: 60 Year
  Sex: Female
  Weight: 68 kg

DRUGS (6)
  1. CLOZARIL [Suspect]
     Indication: BIPOLAR DISORDER
     Dosage: 200 MG
     Dates: start: 20080910
  2. LITHIUM [Concomitant]
     Indication: BIPOLAR DISORDER
     Dosage: 400 MG, UNK
     Route: 048
     Dates: start: 20080910
  3. PROPIVERINE [Concomitant]
     Indication: URINARY TRACT DISORDER
     Dosage: 15 MG, UNK
     Route: 048
     Dates: start: 20080520
  4. ASPIRIN [Concomitant]
     Dosage: 75 MG, UNK
     Route: 048
     Dates: start: 20080520
  5. OMACOR [Concomitant]
     Indication: BIPOLAR DISORDER
     Dosage: 1 DF, UNK
     Route: 048
     Dates: start: 20080929
  6. OMEPRAZOLE [Concomitant]
     Indication: DYSPEPSIA
     Dosage: 20 MG, UNK
     Route: 048
     Dates: start: 20080520

REACTIONS (9)
  - BLOOD SODIUM DECREASED [None]
  - C-REACTIVE PROTEIN INCREASED [None]
  - CEREBELLAR ATAXIA [None]
  - CEREBELLAR HAEMORRHAGE [None]
  - COORDINATION ABNORMAL [None]
  - DYSARTHRIA [None]
  - DYSKINESIA [None]
  - TREMOR [None]
  - WHITE BLOOD CELL COUNT INCREASED [None]
